FAERS Safety Report 6576840-X (Version None)
Quarter: 2010Q1

REPORT INFORMATION
  Report Type: 
  Country: None (occurrence: None)
  Receive Date: 20100210
  Receipt Date: 20100201
  Transmission Date: 20100710
  Serious: Yes (Death, Hospitalization)
  Sender: FDA-Public Use
  Company Number: ZA-GENENTECH-297383

PATIENT
  Age: 65 Year
  Sex: Female

DRUGS (5)
  1. MABTHERA [Suspect]
     Indication: NON-HODGKIN'S LYMPHOMA
     Dosage: 570 MG, UNK
     Route: 042
     Dates: start: 20091209
  2. CYCLOPHOSPHAMIDE [Concomitant]
     Indication: DRUG USE FOR UNKNOWN INDICATION
     Dosage: 1100 MG, UNK
     Route: 042
     Dates: start: 20091209
  3. VINCRISTINE [Concomitant]
     Indication: DRUG USE FOR UNKNOWN INDICATION
     Dosage: 1.5 MG, UNK
     Route: 042
     Dates: start: 20091209
  4. PREDNISONE [Concomitant]
     Indication: DRUG USE FOR UNKNOWN INDICATION
     Dosage: 100 MG, Q5D
     Route: 048
     Dates: start: 20091209
  5. PALONOSETRON [Concomitant]
     Indication: DRUG USE FOR UNKNOWN INDICATION
     Dosage: 0.25 MG, UNK
     Route: 042

REACTIONS (1)
  - FEBRILE NEUTROPENIA [None]
